FAERS Safety Report 8441095 (Version 2)
Quarter: 2013Q2

REPORT INFORMATION
  Report Type: Report from Study
  Country: AU (occurrence: AU)
  Receive Date: 20120305
  Receipt Date: 20130621
  Transmission Date: 20140414
  Serious: Yes (Other)
  Sender: FDA-Public Use
  Company Number: AU-ROCHE-1042404

PATIENT
  Sex: Female

DRUGS (8)
  1. TOCILIZUMAB [Suspect]
     Indication: RHEUMATOID ARTHRITIS
     Route: 065
     Dates: start: 20120124
  2. ARAVA [Concomitant]
  3. LIPITOR [Concomitant]
  4. THYROXINE [Concomitant]
  5. HYDRENE [Concomitant]
  6. MEGAFOL [Concomitant]
  7. CYMBALTA [Concomitant]
  8. MERSYNDOL [Concomitant]

REACTIONS (2)
  - Adverse drug reaction [Not Recovered/Not Resolved]
  - Viral infection [Not Recovered/Not Resolved]
